FAERS Safety Report 6236529-3 (Version None)
Quarter: 2009Q2

REPORT INFORMATION
  Report Type: 
  Country: None (occurrence: None)
  Receive Date: 20090619
  Receipt Date: 20090612
  Transmission Date: 20091009
  Serious: Yes (Hospitalization, Other)
  Sender: FDA-Public Use
  Company Number: B0574891A

PATIENT
  Sex: Female

DRUGS (6)
  1. VALTREX [Suspect]
     Indication: HERPES ZOSTER
     Dosage: 3000MG PER DAY
     Route: 048
     Dates: start: 20090514, end: 20090514
  2. ZANTAC [Concomitant]
     Route: 048
  3. MARZULENE [Concomitant]
     Route: 048
  4. NITRODERM [Concomitant]
     Route: 062
  5. CALTAN [Concomitant]
     Route: 048
  6. PLATIBIT [Concomitant]
     Route: 048

REACTIONS (3)
  - ACCIDENTAL OVERDOSE [None]
  - ALTERED STATE OF CONSCIOUSNESS [None]
  - ENCEPHALOPATHY [None]
